FAERS Safety Report 6104213-2 (Version None)
Quarter: 2009Q1

REPORT INFORMATION
  Report Type: 
  Country: None (occurrence: None)
  Receive Date: 20090305
  Receipt Date: 20090123
  Transmission Date: 20090719
  Serious: Yes (Hospitalization, Other)
  Sender: FDA-Public Use
  Company Number: CA-PFIZER INC-2008158270

PATIENT

DRUGS (13)
  1. LYRICA [Suspect]
     Indication: OSTEOPOROSIS
     Route: 048
  2. LYRICA [Suspect]
     Indication: OSTEOARTHRITIS
  3. SALBUTAMOL SULFATE [Suspect]
  4. IPRATROPIUM BROMIDE [Suspect]
  5. OMEPRAZOLE [Concomitant]
     Dosage: UNK
  6. CALCIUM CARBONATE [Concomitant]
     Dosage: UNK
  7. VITAMIN D [Concomitant]
     Dosage: UNK
  8. CELECOXIB [Concomitant]
  9. ETIDRONATE DISODIUM [Concomitant]
  10. FLUTICASONE PROPIONATE [Concomitant]
     Dosage: UNK
  11. SALMETEROL [Concomitant]
     Dosage: UNK
  12. ACETAMINOPHEN [Concomitant]
     Dosage: UNK
  13. IBUPROFEN [Concomitant]

REACTIONS (16)
  - ANXIETY [None]
  - ATELECTASIS [None]
  - BLOOD CREATININE INCREASED [None]
  - BLOOD PRESSURE INCREASED [None]
  - CHEST PAIN [None]
  - CHRONIC OBSTRUCTIVE PULMONARY DISEASE [None]
  - COUGH [None]
  - DYSPNOEA [None]
  - NEUTROPHIL FUNCTION DISORDER [None]
  - OXYGEN SATURATION DECREASED [None]
  - PALPITATIONS [None]
  - TACHYCARDIA [None]
  - THROMBOCYTOPENIA [None]
  - URINARY TRACT INFECTION [None]
  - WHEEZING [None]
  - WHITE BLOOD CELL COUNT INCREASED [None]
